FAERS Safety Report 9990335 (Version 1)
Quarter: 2014Q1

REPORT INFORMATION
  Report Type: Report from Study
  Country: US (occurrence: US)
  Receive Date: 20140310
  Receipt Date: 20140310
  Transmission Date: 20141002
  Serious: No
  Sender: FDA-Public Use
  Company Number: US-ABBVIE-13P-163-1133748-00

PATIENT
  Age: 36 Year
  Sex: Male

DRUGS (9)
  1. HUMIRA [Suspect]
     Indication: CROHN^S DISEASE
     Dates: start: 20121108
  2. LEXAPRO [Concomitant]
     Indication: DEPRESSION
     Dosage: 30MG DAILY
  3. WELLBUTRIN ER [Concomitant]
     Indication: DEPRESSION
     Dosage: 30MG DAILY
  4. NORCO [Concomitant]
     Indication: PAIN
     Dosage: AS NEEDED
  5. METHOTREXATE [Concomitant]
     Indication: CROHN^S DISEASE
     Dosage: 25MG BY MOUTH WEEKLY
     Route: 048
  6. ENTOCORT [Concomitant]
     Indication: CROHN^S DISEASE
     Dosage: 6MG DAILY
  7. ENTOCORT [Concomitant]
  8. OMEPRAZOLE [Concomitant]
     Indication: ULCER
     Dosage: 20MG DAILY
  9. ZOFRAN [Concomitant]
     Indication: NAUSEA
     Dosage: AS NEEDED

REACTIONS (3)
  - Injection site pain [Recovering/Resolving]
  - Injection site haemorrhage [Recovering/Resolving]
  - Drug ineffective [Recovering/Resolving]
